FAERS Safety Report 5431406-X (Version None)
Quarter: 2007Q3

REPORT INFORMATION
  Report Type: 
  Country: None (occurrence: None)
  Receive Date: 20070830
  Receipt Date: 20070530
  Transmission Date: 20080115
  Serious: No
  Sender: FDA-Public Use
  Company Number: A0653471A

PATIENT
  Age: 52 Year
  Sex: Female

DRUGS (6)
  1. BUPROPION HYDROCHLORIDE [Suspect]
     Indication: DEPRESSION
     Dosage: 300MG PER DAY
     Route: 048
  2. WELLBUTRIN XL [Suspect]
     Indication: DEPRESSION
     Dosage: 300MG PER DAY
     Route: 048
  3. SYNTHROID [Concomitant]
  4. NEXIUM [Concomitant]
  5. TOPAMAX [Concomitant]
  6. IMITREX [Concomitant]

REACTIONS (5)
  - AGITATION [None]
  - ARTHRALGIA [None]
  - BACK PAIN [None]
  - HEART RATE INCREASED [None]
  - OVERDOSE [None]
